FAERS Safety Report 4548338-1 (Version None)
Quarter: 2005Q1

REPORT INFORMATION
  Report Type: 
  Country: None (occurrence: None)
  Receive Date: 20050106
  Receipt Date: 20050106
  Transmission Date: 20050727
  Serious: Yes (Death)
  Sender: FDA-Public Use
  Company Number: None

PATIENT
  Age: 37 Year
  Sex: Male
  Weight: 77.1115 kg

DRUGS (5)
  1. MEPERIDINE 10 MG/ML ABBOTT LABS [Suspect]
     Indication: PAIN MANAGEMENT
     Dosage: PCA CONT+ DEMANED IV
     Route: 042
     Dates: start: 20040228, end: 20040301
  2. CELEXA [Suspect]
     Indication: DEPRESSION
     Dosage: DAILY ORAL
     Route: 048
     Dates: start: 20040220, end: 20040228
  3. ZYPREXA [Concomitant]
  4. CELEBREX [Concomitant]
  5. DEPACON [Concomitant]

REACTIONS (3)
  - CARDIO-RESPIRATORY ARREST [None]
  - OVERDOSE [None]
  - POSTOPERATIVE ILEUS [None]
